FAERS Safety Report 4781961-8 (Version None)
Quarter: 2005Q3

REPORT INFORMATION
  Report Type: 
  Country: None (occurrence: None)
  Receive Date: 20050928
  Receipt Date: 20050919
  Transmission Date: 20060218
  Serious: Yes (Other)
  Sender: FDA-Public Use
  Company Number: CH-MERCK-0509CHE00044

PATIENT
  Age: 20 Day
  Sex: Male

DRUGS (1)
  1. NOROXIN [Suspect]
     Indication: NEONATAL INFECTIVE MASTITIS
     Route: 065

REACTIONS (1)
  - IRRITABILITY [None]
